FAERS Safety Report 8790420 (Version 1)
Quarter: 2012Q4

REPORT INFORMATION
  Report Type: Spontaneous
  Country: US (occurrence: None)
  Receive Date: 20120911
  Receipt Date: 20120911
  Transmission Date: 20130627
  Serious: Yes (Other)
  Sender: FDA-Public Use
  Company Number: None

PATIENT
  Age: 67 Year
  Sex: Female
  Weight: 68.04 kg

DRUGS (1)
  1. LUNESTA [Suspect]
     Indication: DIFFICULTY SLEEPING
     Dates: start: 20120828, end: 20120830

REACTIONS (9)
  - Palpitations [None]
  - Anxiety [None]
  - Tension [None]
  - Anger [None]
  - Aggression [None]
  - Insomnia [None]
  - Restlessness [None]
  - Dyskinesia [None]
  - Feeling abnormal [None]
